FAERS Safety Report 5915147-8 (Version None)
Quarter: 2008Q4

REPORT INFORMATION
  Report Type: 
  Country: None (occurrence: None)
  Receive Date: 20081010
  Receipt Date: 20081001
  Transmission Date: 20090506
  Serious: Yes (Death, Other)
  Sender: FDA-Public Use
  Company Number: NO-JNJFOC-20080904538

PATIENT
  Sex: Female
  Weight: 45 kg

DRUGS (9)
  1. REMICADE [Suspect]
     Indication: RHEUMATOID ARTHRITIS
     Route: 042
  2. FOSAMAX [Concomitant]
     Route: 048
  3. SALAZOPYRIN EN [Concomitant]
     Route: 048
  4. DUROFERON [Concomitant]
     Route: 048
  5. ASCORBIC ACID [Concomitant]
     Route: 048
  6. PREDNISOLONE [Concomitant]
     Route: 048
  7. BETOLVEX [Concomitant]
     Route: 051
  8. DIURAL [Concomitant]
  9. LYRICA [Concomitant]
     Route: 048

REACTIONS (6)
  - BRONCHOPNEUMONIA [None]
  - INTESTINAL PERFORATION [None]
  - INTESTINAL ULCER [None]
  - MYOCARDIAL INFARCTION [None]
  - PERITONITIS [None]
  - SUDDEN DEATH [None]
